FAERS Safety Report 21761599 (Version 1)
Quarter: 2022Q4

REPORT INFORMATION
  Report Type: Spontaneous
  Country: US (occurrence: US)
  Receive Date: 20221221
  Receipt Date: 20221221
  Transmission Date: 20230113
  Serious: No
  Sender: FDA-Public Use
  Company Number: US-PFIZER INC-202201385076

PATIENT
  Age: 46 Year
  Sex: Female

DRUGS (11)
  1. BOSULIF [Suspect]
     Active Substance: BOSUTINIB MONOHYDRATE
     Dosage: UNK
  2. GLEEVEC [Suspect]
     Active Substance: IMATINIB MESYLATE
     Dosage: UNK
  3. ASPIRIN [Concomitant]
     Active Substance: ASPIRIN
     Dosage: UNK (LOW DOSE)
  4. COREG [Concomitant]
     Active Substance: CARVEDILOL
     Dosage: UNK
  5. CYMBALTA [Concomitant]
     Active Substance: DULOXETINE HYDROCHLORIDE
     Dosage: UNK
  6. SPIRONOLACTONE [Concomitant]
     Active Substance: SPIRONOLACTONE
     Dosage: UNK
  7. LYRICA [Concomitant]
     Active Substance: PREGABALIN
     Dosage: UNK
  8. TRAMADOL HCL [Concomitant]
     Active Substance: TRAMADOL HYDROCHLORIDE
     Dosage: UNK
  9. HYDROXYCHLOROQUINE SULFATE [Concomitant]
     Active Substance: HYDROXYCHLOROQUINE SULFATE
     Dosage: UNK
  10. MYRBETRIQ [Concomitant]
     Active Substance: MIRABEGRON
     Dosage: UNK
  11. NURTEC ODT [Concomitant]
     Active Substance: RIMEGEPANT SULFATE
     Dosage: UNK

REACTIONS (1)
  - Neoplasm progression [Unknown]
